FAERS Safety Report 8816621 (Version 1)
Quarter: 2012Q4

REPORT INFORMATION
  Report Type: Spontaneous
  Country: DE (occurrence: None)
  Receive Date: 20120928
  Receipt Date: 20120928
  Transmission Date: 20130627
  Serious: Yes (Hospitalization)
  Sender: FDA-Public Use
  Company Number: AUR-APL-2012-04163

PATIENT
  Age: 87 Year
  Sex: Female
  Weight: 46 kg

DRUGS (5)
  1. RISPERIDONE [Suspect]
     Indication: CONFUSIONAL STATE
     Route: 048
     Dates: start: 201205, end: 20120509
  2. METAMIZOLE [Suspect]
     Indication: BACK PAIN
     Route: 048
     Dates: start: 20120502, end: 20120509
  3. PANTOPRAZOLE (PANTOPRAZOLE) [Concomitant]
  4. AMLODIPINE (AMLODIPINE) [Concomitant]
  5. LORAZEPAM (LORAZEPAM) [Concomitant]

REACTIONS (1)
  - Pancytopenia [None]
